FAERS Safety Report 4893790-5 (Version None)
Quarter: 2006Q1

REPORT INFORMATION
  Report Type: 
  Country: None (occurrence: None)
  Receive Date: 20060127
  Receipt Date: 20060124
  Transmission Date: 20060701
  Serious: Yes (Death)
  Sender: FDA-Public Use
  Company Number: 2006AC00164

PATIENT
  Age: 27 Year
  Sex: Female

DRUGS (1)
  1. PROPOFOL [Suspect]
     Indication: COMA

REACTIONS (3)
  - BRADYCARDIA [None]
  - HYPOTENSION [None]
  - METABOLIC ACIDOSIS [None]
